FAERS Safety Report 26102691 (Version 1)
Quarter: 2025Q4

REPORT INFORMATION
  Report Type: Spontaneous
  Country: CA (occurrence: CA)
  Receive Date: 20251128
  Receipt Date: 20251128
  Transmission Date: 20260117
  Serious: Yes (Hospitalization, Other)
  Sender: PFIZER
  Company Number: CA-PFIZER INC-202500232821

PATIENT
  Age: 65 Year
  Sex: Male

DRUGS (9)
  1. IXIFI [Suspect]
     Active Substance: INFLIXIMAB-QBTX
     Dosage: 350 MG, EVERY 6 WEEKS
     Route: 042
     Dates: start: 20250830
  2. IXIFI [Suspect]
     Active Substance: INFLIXIMAB-QBTX
     Dosage: 350 MG, EVERY 6 WEEKS
     Route: 042
     Dates: start: 20251016
  3. IXIFI [Suspect]
     Active Substance: INFLIXIMAB-QBTX
     Dosage: 350 MG, 5 WEEKS 4 DAYS (EVERY 6 WEEKS)
     Route: 042
     Dates: start: 20251124
  4. ADALAT [Concomitant]
     Active Substance: NIFEDIPINE
     Dosage: 1 DF
  5. CELLCEPT [Concomitant]
     Active Substance: MYCOPHENOLATE MOFETIL
     Dosage: 1 DF
  6. DILTIAZEM [Concomitant]
     Active Substance: DILTIAZEM
     Dosage: 1 DF
  7. METFORMIN [Concomitant]
     Active Substance: METFORMIN HYDROCHLORIDE
     Dosage: 1 DF
  8. PREDNISONE [Concomitant]
     Active Substance: PREDNISONE
     Dosage: 1 DF
  9. PERINDOPRIL [Concomitant]
     Active Substance: PERINDOPRIL
     Dosage: 1 DF

REACTIONS (1)
  - Leg amputation [Recovering/Resolving]

NARRATIVE: CASE EVENT DATE: 20251105
